FAERS Safety Report 18089262 (Version 1)
Quarter: 2020Q3

REPORT INFORMATION
  Report Type: Spontaneous
  Country: GB (occurrence: GB)
  Receive Date: 20200730
  Receipt Date: 20200730
  Transmission Date: 20201103
  Serious: Yes (Other)
  Sender: FDA-Public Use
  Company Number: GB-BEH-2020120282

PATIENT
  Age: 24 Year
  Sex: Female
  Weight: 64 kg

DRUGS (2)
  1. RHOPHYLAC [Suspect]
     Active Substance: HUMAN RHO(D) IMMUNE GLOBULIN
     Indication: RHESUS ANTIBODIES
     Dosage: 1500 INTERNATIONAL UNIT, TOT
     Route: 051
     Dates: start: 20200703, end: 20200703
  2. RHOPHYLAC [Suspect]
     Active Substance: HUMAN RHO(D) IMMUNE GLOBULIN
     Indication: RHESUS ANTIBODIES
     Dosage: 1500 INTERNATIONAL UNIT, TOT
     Route: 051
     Dates: start: 20200703, end: 20200703

REACTIONS (3)
  - No adverse event [Unknown]
  - Migraine [Not Recovered/Not Resolved]
  - Exposure during pregnancy [Unknown]

NARRATIVE: CASE EVENT DATE: 20200703
